FAERS Safety Report 5503150-1 (Version None)
Quarter: 2007Q4

REPORT INFORMATION
  Report Type: 
  Country: None (occurrence: None)
  Receive Date: 20071031
  Receipt Date: 20071025
  Transmission Date: 20080405
  Serious: Yes (Death)
  Sender: FDA-Public Use
  Company Number: ES-ELI_LILLY_AND_COMPANY-ES200710006460

PATIENT
  Age: 63 Year
  Sex: Female

DRUGS (3)
  1. FORTEO [Suspect]
     Indication: OSTEOPOROSIS
     Dosage: 20 UG, UNKNOWN
     Route: 058
     Dates: start: 20060501, end: 20071020
  2. METHOTREXATE [Concomitant]
     Dosage: UNK, UNKNOWN
  3. SINTROM [Concomitant]
     Indication: POOR PERIPHERAL CIRCULATION
     Dosage: UNK, UNKNOWN
     Dates: start: 20030101

REACTIONS (4)
  - CARDIAC ARREST [None]
  - INFECTION [None]
  - PURULENCE [None]
  - WOUND INFECTION [None]
